FAERS Safety Report 16817902 (Version 1)
Quarter: 2019Q3

REPORT INFORMATION
  Report Type: Report from Study
  Country: US (occurrence: US)
  Receive Date: 20190917
  Receipt Date: 20190917
  Transmission Date: 20191005
  Serious: Yes (Hospitalization, Other)
  Sender: FDA-Public Use
  Company Number: US-JNJFOC-20180317279

PATIENT
  Age: 72 Year
  Sex: Female

DRUGS (38)
  1. SYNTHROID [Concomitant]
     Active Substance: LEVOTHYROXINE SODIUM
  2. AVASTIN [Concomitant]
     Active Substance: BEVACIZUMAB
  3. KLOR-CON [Concomitant]
     Active Substance: POTASSIUM CHLORIDE
  4. ATORVASTATIN CALCIUM. [Concomitant]
     Active Substance: ATORVASTATIN CALCIUM
  5. SINGULAIR [Concomitant]
     Active Substance: MONTELUKAST SODIUM
  6. LANTUS [Concomitant]
     Active Substance: INSULIN GLARGINE
  7. BUDESONIDE. [Concomitant]
     Active Substance: BUDESONIDE
  8. PRILOSEC [Concomitant]
     Active Substance: OMEPRAZOLE MAGNESIUM
  9. ASCORBIC ACID. [Concomitant]
     Active Substance: ASCORBIC ACID
  10. MULTI COMPLETE [Concomitant]
  11. PRAVACHOL [Concomitant]
     Active Substance: PRAVASTATIN SODIUM
  12. ZOFRAN [Concomitant]
     Active Substance: ONDANSETRON HYDROCHLORIDE
  13. MULTIVITAMINS [Concomitant]
     Active Substance: VITAMINS
  14. CALCIUM CARBONATE W/VITAMIN D      /00944201/ [Concomitant]
  15. CALCIUM [Concomitant]
     Active Substance: CALCIUM
  16. POTASSIUM [Concomitant]
     Active Substance: POTASSIUM
  17. CALCIUM CARBONATE. [Concomitant]
     Active Substance: CALCIUM CARBONATE
  18. TOPROL XL [Concomitant]
     Active Substance: METOPROLOL SUCCINATE
  19. ALBUTEROL. [Concomitant]
     Active Substance: ALBUTEROL
  20. BREO ELLIPTA [Concomitant]
     Active Substance: FLUTICASONE FUROATE\VILANTEROL TRIFENATATE
  21. NORCO [Concomitant]
     Active Substance: ACETAMINOPHEN\HYDROCODONE BITARTRATE
  22. SIMVASTATIN. [Concomitant]
     Active Substance: SIMVASTATIN
  23. GLUCOVANCE [Concomitant]
     Active Substance: GLYBURIDE\METFORMIN HYDROCHLORIDE
  24. BENADRYL [Concomitant]
     Active Substance: DIPHENHYDRAMINE HYDROCHLORIDE
     Route: 065
  25. IMBRUVICA [Suspect]
     Active Substance: IBRUTINIB
     Route: 048
     Dates: start: 20170508, end: 20180309
  26. NOVOLOG [Concomitant]
     Active Substance: INSULIN ASPART
  27. LOSARTAN POTASSIUM. [Concomitant]
     Active Substance: LOSARTAN POTASSIUM
  28. GLIMEPIRIDE. [Concomitant]
     Active Substance: GLIMEPIRIDE
  29. ADVAIR HFA [Concomitant]
     Active Substance: FLUTICASONE PROPIONATE\SALMETEROL XINAFOATE
  30. ACYCLOVIR. [Concomitant]
     Active Substance: ACYCLOVIR
  31. ULTRAM [Concomitant]
     Active Substance: TRAMADOL HYDROCHLORIDE
  32. TYLENOL [Concomitant]
     Active Substance: ACETAMINOPHEN
  33. ACETAMINOPHEN. [Concomitant]
     Active Substance: ACETAMINOPHEN
  34. IMBRUVICA [Suspect]
     Active Substance: IBRUTINIB
     Indication: CHRONIC LYMPHOCYTIC LEUKAEMIA
     Route: 048
     Dates: start: 20170509, end: 20180309
  35. VITAMIN D3 [Concomitant]
     Active Substance: CHOLECALCIFEROL
  36. PROCHLORPERAZINE. [Concomitant]
     Active Substance: PROCHLORPERAZINE
  37. LISINOPRIL/HCTZ [Concomitant]
     Active Substance: HYDROCHLOROTHIAZIDE\LISINOPRIL
  38. LASIX [Concomitant]
     Active Substance: FUROSEMIDE

REACTIONS (9)
  - Abdominal discomfort [Unknown]
  - Muscle spasms [Unknown]
  - Bone pain [Unknown]
  - Peripheral swelling [Unknown]
  - Blood sodium decreased [Unknown]
  - Bronchitis [Unknown]
  - Blood calcium decreased [Unknown]
  - Petechiae [Unknown]
  - Haemoglobin decreased [Unknown]

NARRATIVE: CASE EVENT DATE: 201802
